FAERS Safety Report 8249732-8 (Version None)
Quarter: 2012Q2

REPORT INFORMATION
  Report Type: 
  Country: None (occurrence: None)
  Receive Date: 20120402
  Receipt Date: 20120319
  Transmission Date: 20120825
  Serious: Yes (Hospitalization)
  Sender: FDA-Public Use
  Company Number: DE-MYLANLABS-2012S1005902

PATIENT
  Age: 4 Day
  Sex: Female
  Weight: 2.67 kg

DRUGS (1)
  1. SUMATRIPTAN [Suspect]
     Route: 064

REACTIONS (3)
  - BRADYCARDIA [None]
  - APNOEA [None]
  - MATERNAL EXPOSURE DURING PREGNANCY [None]
